FAERS Safety Report 5069623-3 (Version None)
Quarter: 2006Q3

REPORT INFORMATION
  Report Type: 
  Country: None (occurrence: None)
  Receive Date: 20060714
  Receipt Date: 20060319
  Transmission Date: 20061208
  Serious: No
  Sender: FDA-Public Use
  Company Number: 2006SP001289

PATIENT
  Age: 70 Year
  Sex: Female
  Weight: 68.0396 kg

DRUGS (5)
  1. LUNESTA [Suspect]
     Indication: INSOMNIA
     Dosage: 2 MG;1X;ORAL
     Route: 048
     Dates: start: 20060101, end: 20060101
  2. LUNESTA [Suspect]
     Indication: INSOMNIA
     Dosage: 2 MG;1X;ORAL
     Route: 048
     Dates: start: 20060101, end: 20060101
  3. ROZEREM [Suspect]
     Indication: INSOMNIA
     Dosage: 8 MG;1X
     Dates: start: 20060101, end: 20060101
  4. CLONAZEPAM [Concomitant]
  5. VALERIAN [Concomitant]

REACTIONS (4)
  - DRUG INEFFECTIVE [None]
  - FEAR [None]
  - INSOMNIA [None]
  - SOMNOLENCE [None]
